FAERS Safety Report 6028282-3 (Version None)
Quarter: 2009Q1

REPORT INFORMATION
  Report Type: 
  Country: None (occurrence: None)
  Receive Date: 20090102
  Receipt Date: 20081217
  Transmission Date: 20090719
  Serious: Yes (Life-Threatening, Hospitalization)
  Sender: FDA-Public Use
  Company Number: 2008AL012581

PATIENT
  Age: 58 Year
  Sex: 0

DRUGS (1)
  1. GABAPENTIN [Suspect]
     Indication: NEURALGIA
     Dosage: 400 MG;TID;PO
     Route: 048
     Dates: start: 20080801, end: 20081001

REACTIONS (2)
  - BEDRIDDEN [None]
  - HEPATITIS [None]
